FAERS Safety Report 8547297 (Version 3)
Quarter: 2014Q2

REPORT INFORMATION
  Report Type: Spontaneous
  Country: US (occurrence: US)
  Receive Date: 20120504
  Receipt Date: 20140402
  Transmission Date: 20141212
  Serious: Yes (Hospitalization)
  Sender: FDA-Public Use
  Company Number: US-GLAXOSMITHKLINE-A0781727A

PATIENT
  Age: 61 Year
  Sex: Male
  Weight: 105.5 kg

DRUGS (2)
  1. AVANDAMET [Suspect]
     Indication: TYPE 2 DIABETES MELLITUS
     Route: 048
     Dates: start: 200301, end: 200310
  2. AVANDIA [Suspect]
     Indication: TYPE 2 DIABETES MELLITUS
     Dosage: 4MG TWICE PER DAY
     Route: 048
     Dates: start: 2004, end: 2007

REACTIONS (4)
  - Myocardial infarction [Not Recovered/Not Resolved]
  - Angina pectoris [Unknown]
  - Arteriosclerosis [Unknown]
  - Arterial occlusive disease [Unknown]
